FAERS Safety Report 5201047-8 (Version None)
Quarter: 2007Q1

REPORT INFORMATION
  Report Type: 
  Country: None (occurrence: None)
  Receive Date: 20070108
  Receipt Date: 20070103
  Transmission Date: 20070707
  Serious: Yes (Hospitalization)
  Sender: FDA-Public Use
  Company Number: GB-ELI_LILLY_AND_COMPANY-GB200611004395

PATIENT
  Age: 29 Year
  Sex: Male

DRUGS (5)
  1. ZYPREXA [Suspect]
     Indication: SCHIZOPHRENIA
     Dosage: 20 MG, UNKNOWN
     Route: 065
  2. ZYPREXA [Suspect]
     Dosage: 30 MG, DAILY (1/D)
     Route: 048
     Dates: start: 20060901, end: 20061101
  3. ZYPREXA [Suspect]
     Dosage: 40 MG, UNKNOWN
     Route: 065
  4. CLOZAPINE [Concomitant]
     Indication: SCHIZOPHRENIA
     Dosage: 25 MG, UNKNOWN
     Route: 065
  5. CLOZAPINE [Concomitant]
     Dosage: 50 MG, UNKNOWN
     Route: 065

REACTIONS (3)
  - DIABETES MELLITUS INSULIN-DEPENDENT [None]
  - LOWER RESPIRATORY TRACT INFECTION [None]
  - PRESCRIBED OVERDOSE [None]
